FAERS Safety Report 5347372-1 (Version None)
Quarter: 2007Q2

REPORT INFORMATION
  Report Type: 
  Country: None (occurrence: None)
  Receive Date: 20070606
  Receipt Date: 20070530
  Transmission Date: 20071010
  Serious: Yes (Death)
  Sender: FDA-Public Use
  Company Number: US-JNJFOC-20070600206

PATIENT
  Sex: Male
  Weight: 54.43 kg

DRUGS (3)
  1. DURAGESIC-100 [Suspect]
     Indication: PAIN
     Route: 062
  2. CODEINE SUL TAB [Concomitant]
     Indication: PAIN
     Route: 048
  3. MORPHINE [Concomitant]
     Indication: PAIN
     Route: 048

REACTIONS (2)
  - DRUG INEFFECTIVE [None]
  - PANCREATIC CARCINOMA [None]
